FAERS Safety Report 8137027-2 (Version None)
Quarter: 2012Q1

REPORT INFORMATION
  Report Type: 
  Country: None (occurrence: None)
  Receive Date: 20120215
  Receipt Date: 20120207
  Transmission Date: 20120608
  Serious: Yes (Hospitalization)
  Sender: FDA-Public Use
  Company Number: US-BIOGENIDEC-2011BI035365

PATIENT
  Age: 48 Year
  Sex: Male

DRUGS (8)
  1. METOCLOPRAMIDE [Concomitant]
     Indication: HYPERTENSION
     Dates: start: 20090101
  2. JANUVIA [Concomitant]
     Indication: DIABETES MELLITUS
     Dates: end: 20110901
  3. AVONEX [Suspect]
     Indication: MULTIPLE SCLEROSIS
     Route: 030
     Dates: start: 20110807
  4. INSULIN [Concomitant]
     Indication: DIABETES MELLITUS
     Dates: start: 20110901, end: 20110901
  5. AVONEX [Suspect]
     Route: 030
     Dates: start: 20110807
  6. LISINOPRIL WITH HCTZ [Concomitant]
     Indication: HYPERTENSION
     Dates: start: 20040101, end: 20110915
  7. AMLODIPINE [Concomitant]
     Indication: HYPERTENSION
     Dates: start: 20090101, end: 20110915
  8. METFORMIN HCL [Concomitant]
     Indication: DIABETES MELLITUS
     Dates: start: 20110901

REACTIONS (10)
  - FEMORAL ARTERY ANEURYSM [None]
  - CENTRAL NERVOUS SYSTEM LESION [None]
  - PROCEDURAL PAIN [None]
  - THROMBOSIS [None]
  - MUSCLE SPASMS [None]
  - RENAL FAILURE [None]
  - POOR PERIPHERAL CIRCULATION [None]
  - INFECTION [None]
  - BLOOD COUNT ABNORMAL [None]
  - MYALGIA [None]
